FAERS Safety Report 17457245 (Version 1)
Quarter: 2020Q1

REPORT INFORMATION
  Report Type: Report from Study
  Country: None (occurrence: NL)
  Receive Date: 20200225
  Receipt Date: 20200225
  Transmission Date: 20200409
  Serious: Yes (Hospitalization)
  Sender: FDA-Public Use
  Company Number: NL-ABBVIE-16P-114-1737854-00

PATIENT
  Sex: Female
  Weight: 48.5 kg

DRUGS (10)
  1. LEVODOPA RETARD [Suspect]
     Active Substance: LEVODOPA
     Indication: PRODUCT USED FOR UNKNOWN INDICATION
     Route: 065
  2. DUODOPA [Suspect]
     Active Substance: CARBIDOPA\LEVODOPA
     Indication: PARKINSON^S DISEASE
     Dosage: MD: 9.3, CD: 3.6, ED: 2.5
     Route: 050
     Dates: start: 20150415
  3. DUODOPA [Suspect]
     Active Substance: CARBIDOPA\LEVODOPA
     Dosage: INCREASED THE CONTINUOUS DOSE
     Route: 050
  4. DUODOPA [Suspect]
     Active Substance: CARBIDOPA\LEVODOPA
     Route: 050
     Dates: start: 20150514
  5. DUODOPA [Suspect]
     Active Substance: CARBIDOPA\LEVODOPA
     Dosage: MD 9.3 CD 4.4, ED 2.5, , NIGHT PUMP MD 0.0 ED 2.5, CD 2.6
     Route: 050
  6. NUTRIDRINK [Suspect]
     Active Substance: CARBOHYDRATES\FATTY ACIDS\MINERALS\PROTEIN\VITAMINS
     Indication: VOMITING
  7. NUTRIDRINK [Suspect]
     Active Substance: CARBOHYDRATES\FATTY ACIDS\MINERALS\PROTEIN\VITAMINS
     Indication: NAUSEA
  8. MOVICOLON [Concomitant]
     Active Substance: POLYETHYLENE GLYCOL 3350\POTASSIUM CHLORIDE\SODIUM BICARBONATE\SODIUM CHLORIDE
     Indication: ABNORMAL FAECES
  9. NUTRIDRINK [Suspect]
     Active Substance: CARBOHYDRATES\FATTY ACIDS\MINERALS\PROTEIN\VITAMINS
     Indication: WEIGHT DECREASED
     Dosage: 2 BOTTLES PER DAY
     Route: 048
  10. MACROGOL [Concomitant]
     Active Substance: POLYETHYLENE GLYCOLS
     Indication: ABNORMAL FAECES
     Route: 065

REACTIONS (60)
  - Mouth swelling [Not Recovered/Not Resolved]
  - Therapeutic product effect decreased [Not Recovered/Not Resolved]
  - Stoma site inflammation [Not Recovered/Not Resolved]
  - Pelvic fracture [Unknown]
  - Psychiatric symptom [Unknown]
  - Muscle rigidity [Not Recovered/Not Resolved]
  - Discomfort [Not Recovered/Not Resolved]
  - Increased upper airway secretion [Not Recovered/Not Resolved]
  - Fall [Not Recovered/Not Resolved]
  - Abnormal dreams [Not Recovered/Not Resolved]
  - Weight decreased [Not Recovered/Not Resolved]
  - Constipation [Recovered/Resolved]
  - Tension [Not Recovered/Not Resolved]
  - Nocturia [Not Recovered/Not Resolved]
  - Balance disorder [Not Recovered/Not Resolved]
  - Fibroma [Recovered/Resolved]
  - Fluid intake reduced [Not Recovered/Not Resolved]
  - Fatigue [Not Recovered/Not Resolved]
  - Unevaluable event [Not Recovered/Not Resolved]
  - Vomiting [Not Recovered/Not Resolved]
  - Bradykinesia [Not Recovered/Not Resolved]
  - Stoma site erythema [Not Recovered/Not Resolved]
  - Therapeutic product effect delayed [Not Recovered/Not Resolved]
  - Hyperreflexia [Not Recovered/Not Resolved]
  - Lip dry [Not Recovered/Not Resolved]
  - Memory impairment [Not Recovered/Not Resolved]
  - Abdominal distension [Not Recovered/Not Resolved]
  - Nausea [Not Recovered/Not Resolved]
  - On and off phenomenon [Not Recovered/Not Resolved]
  - Stoma site reaction [Not Recovered/Not Resolved]
  - Therapeutic product effect incomplete [Recovered/Resolved]
  - Restlessness [Recovering/Resolving]
  - Mobility decreased [Not Recovered/Not Resolved]
  - Inappropriate schedule of product administration [Unknown]
  - Abnormal faeces [Not Recovered/Not Resolved]
  - Tremor [Not Recovered/Not Resolved]
  - Gait disturbance [Not Recovered/Not Resolved]
  - Fear [Not Recovered/Not Resolved]
  - Hallucination [Not Recovered/Not Resolved]
  - Insomnia [Not Recovered/Not Resolved]
  - Abdominal pain upper [Not Recovered/Not Resolved]
  - Dyskinesia [Not Recovered/Not Resolved]
  - Device alarm issue [Unknown]
  - Ageusia [Not Recovered/Not Resolved]
  - Wound secretion [Recovered/Resolved]
  - Salivary hypersecretion [Not Recovered/Not Resolved]
  - Orthostatic hypotension [Not Recovered/Not Resolved]
  - Contusion [Not Recovered/Not Resolved]
  - Scratch [Not Recovered/Not Resolved]
  - Hypophagia [Unknown]
  - Weight increased [Recovered/Resolved]
  - Dysphagia [Not Recovered/Not Resolved]
  - Incision site discharge [Recovered/Resolved]
  - Stoma site discharge [Unknown]
  - Water pollution [Not Recovered/Not Resolved]
  - Cognitive disorder [Not Recovered/Not Resolved]
  - Decreased appetite [Not Recovered/Not Resolved]
  - Extra dose administered [Recovered/Resolved]
  - Freezing phenomenon [Not Recovered/Not Resolved]
  - Stoma site irritation [Not Recovered/Not Resolved]

NARRATIVE: CASE EVENT DATE: 2020
